FAERS Safety Report 7531435-6 (Version None)
Quarter: 2011Q2

REPORT INFORMATION
  Report Type: 
  Country: None (occurrence: None)
  Receive Date: 20110531
  Receipt Date: 20110518
  Transmission Date: 20111010
  Serious: Yes (Congenital Anomaly)
  Sender: FDA-Public Use
  Company Number: 1000021150

PATIENT
  Sex: Male
  Weight: 3.61 kg

DRUGS (8)
  1. DOMPERIDON (DOMPERIDONE) [Suspect]
     Dosage: TRANSPLACENTAL
     Route: 064
  2. MOTILIUM (LOPERAMIDE HYDROCHLORIDE) [Suspect]
     Dosage: (AS REQUIRED), TRANSPLACENTAL
     Route: 064
  3. XANAX [Suspect]
     Dosage: 4 MG (4 MG, 1 IN 1 D), TRANSPLACENTAL
     Route: 064
  4. ALCOHOL (ETHANOL) [Suspect]
     Dosage: 1 LITER OF VODKA, TRANSPLACENTAL
     Route: 064
     Dates: end: 20100616
  5. CANNABIS (CANNABIS SATIVA) [Suspect]
     Dosage: 4-5 JOINTS, TRANSPLACENTAL
     Route: 064
     Dates: end: 20100616
  6. SEROQUEL [Suspect]
     Dosage: 400 MG (200 MG, 2 IN 1 D), TRANSPLACENTAL
     Route: 064
     Dates: start: 20100623
  7. CITALOPRAM HYDROBROMIDE [Suspect]
     Dosage: 40 MG (40 MG, 1 IN 1 D), TRANSPLACENTAL
     Route: 064
  8. COCAINE (COCAINE) [Suspect]
     Dosage: 4-5 LINES, TRANSPLACENTAL
     Route: 064
     Dates: end: 20100616

REACTIONS (6)
  - DRUG WITHDRAWAL SYNDROME NEONATAL [None]
  - ORAL CANDIDIASIS [None]
  - GASTROOESOPHAGEAL REFLUX DISEASE [None]
  - MATERNAL DRUGS AFFECTING FOETUS [None]
  - CAESAREAN SECTION [None]
  - POLYDACTYLY [None]
